FAERS Safety Report 13373842 (Version 2)
Quarter: 2017Q2

REPORT INFORMATION
  Report Type: Spontaneous
  Country: US (occurrence: US)
  Receive Date: 20170327
  Receipt Date: 20170426
  Transmission Date: 20170830
  Serious: No
  Sender: FDA-Public Use
  Company Number: US-PFIZER INC-2017127989

PATIENT
  Sex: Female

DRUGS (1)
  1. PREMPRO [Suspect]
     Active Substance: ESTROGENS, CONJUGATED\MEDROXYPROGESTERONE ACETATE
     Dosage: 1 TABLET, DAILY
     Route: 048
     Dates: start: 20170228

REACTIONS (2)
  - Feeling abnormal [Not Recovered/Not Resolved]
  - Breast tenderness [Not Recovered/Not Resolved]
